FAERS Safety Report 13338773 (Version 1)
Quarter: 2017Q1

REPORT INFORMATION
  Report Type: Spontaneous
  Country: US (occurrence: US)
  Receive Date: 20170315
  Receipt Date: 20170315
  Transmission Date: 20170428
  Serious: No
  Sender: FDA-Public Use
  Company Number: US-DEPOMED, INC.-US-2016DEP012091

PATIENT

DRUGS (1)
  1. GRALISE [Suspect]
     Active Substance: GABAPENTIN
     Indication: CERVICAL RADICULOPATHY
     Dosage: 900 MG, QD, WITH DINNER FOR 1 WEEK THEN 3 TABLETS DAILY WITH DINNER, TITRATED TO 900 MG
     Route: 048
     Dates: start: 20160205

REACTIONS (4)
  - Pruritus generalised [Unknown]
  - Underdose [Recovered/Resolved]
  - Product use issue [Recovered/Resolved]
  - Rash [Unknown]

NARRATIVE: CASE EVENT DATE: 20160205
